FAERS Safety Report 19436410 (Version 1)
Quarter: 2021Q2

REPORT INFORMATION
  Report Type: Spontaneous
  Country: US (occurrence: US)
  Receive Date: 20210618
  Receipt Date: 20210618
  Transmission Date: 20210717
  Serious: No
  Sender: FDA-Public Use
  Company Number: US-LNK INTERNATIONAL, INC.-2112861

PATIENT
  Sex: Male

DRUGS (3)
  1. ACETAMINOPHEN 500MG RAPID RELEASE GELCAPS [Suspect]
     Active Substance: ACETAMINOPHEN
     Indication: ARTHRALGIA
  2. CLARITIN [Concomitant]
     Active Substance: LORATADINE
  3. ZYRTEC [Concomitant]
     Active Substance: CETIRIZINE HYDROCHLORIDE

REACTIONS (3)
  - Eye swelling [None]
  - Urticaria [None]
  - Mouth swelling [None]
